FAERS Safety Report 21604690 (Version 1)
Quarter: 2022Q4

REPORT INFORMATION
  Report Type: Spontaneous
  Country: FR (occurrence: FR)
  Receive Date: 20221116
  Receipt Date: 20221116
  Transmission Date: 20230113
  Serious: Yes (Death)
  Sender: FDA-Public Use
  Company Number: None

PATIENT
  Age: 51 Year
  Sex: Male

DRUGS (9)
  1. MORPHINE SULFATE [Suspect]
     Active Substance: MORPHINE SULFATE
     Indication: Product used for unknown indication
     Dosage: NON RENSEIGNEE
     Route: 065
     Dates: end: 20220722
  2. TEMAZEPAM [Suspect]
     Active Substance: TEMAZEPAM
     Indication: Product used for unknown indication
     Dosage: NON RENSEIGN?E
     Route: 065
     Dates: end: 20220722
  3. ALCOHOL [Suspect]
     Active Substance: ALCOHOL
     Indication: Product used for unknown indication
     Dosage: NON RENSEIGN?E
     Route: 048
     Dates: end: 20220722
  4. DIAZEPAM [Suspect]
     Active Substance: DIAZEPAM
     Indication: Product used for unknown indication
     Dosage: NON RENSEIGN?E
     Route: 065
     Dates: end: 20220722
  5. SKENAN [Suspect]
     Active Substance: MORPHINE SULFATE
     Indication: Product used for unknown indication
     Dosage: NON RENSEIGN?E
     Route: 065
     Dates: end: 20220722
  6. MORPHINE SULFATE [Suspect]
     Active Substance: MORPHINE SULFATE
     Indication: Product used for unknown indication
     Dosage: NON RENSEIGN?E
     Route: 065
     Dates: end: 20220722
  7. NORDAZEPAM [Suspect]
     Active Substance: NORDAZEPAM
     Indication: Product used for unknown indication
     Dosage: NON RENSEIGN?E
     Route: 065
     Dates: end: 20220722
  8. CANNABIDIOL [Suspect]
     Active Substance: CANNABIDIOL
     Indication: Product used for unknown indication
     Dosage: NON RENSEIGN?E
     Route: 065
     Dates: end: 20220722
  9. DRONABINOL [Suspect]
     Active Substance: DRONABINOL
     Indication: Product used for unknown indication
     Dosage: NON RENSEIGN?E
     Route: 065
     Dates: end: 20220722

REACTIONS (3)
  - Respiratory depression [Fatal]
  - Depressed level of consciousness [Fatal]
  - Drug abuse [Fatal]

NARRATIVE: CASE EVENT DATE: 20220722
